FAERS Safety Report 9922142 (Version 1)
Quarter: 2014Q1

REPORT INFORMATION
  Report Type: Spontaneous
  Country: US (occurrence: None)
  Receive Date: 20140224
  Receipt Date: 20140224
  Transmission Date: 20141002
  Serious: Yes (Death)
  Sender: FDA-Public Use
  Company Number: None

PATIENT
  Age: 76 Year
  Sex: Male
  Weight: 74.3 kg

DRUGS (1)
  1. FACTOR VIIA, RECOMBINANT [Suspect]
     Indication: HAEMOPTYSIS
     Route: 042
     Dates: start: 20140208, end: 20140208

REACTIONS (1)
  - Pulmonary embolism [None]
